FAERS Safety Report 13828145 (Version 1)
Quarter: 2017Q3

REPORT INFORMATION
  Report Type: Spontaneous
  Country: DE (occurrence: DE)
  Receive Date: 20170803
  Receipt Date: 20170803
  Transmission Date: 20171127
  Serious: Yes (Death, Congenital Anomaly)
  Sender: FDA-Public Use
  Company Number: DE-BIOGEN-2017BI00440548

PATIENT
  Sex: Female

DRUGS (1)
  1. PLEGRIDY [Suspect]
     Active Substance: PEGINTERFERON BETA-1A
     Indication: MATERNAL EXPOSURE TIMING UNSPECIFIED
     Route: 064
     Dates: start: 20160623, end: 201609

REACTIONS (5)
  - Cerebral disorder [Fatal]
  - Foetal exposure timing unspecified [Recovered/Resolved]
  - Spina bifida [Fatal]
  - Syndactyly [Fatal]
  - Head deformity [Fatal]

NARRATIVE: CASE EVENT DATE: 201701
